FAERS Safety Report 9404762 (Version 3)
Quarter: 2013Q4

REPORT INFORMATION
  Report Type: Spontaneous
  Country: BR (occurrence: BR)
  Receive Date: 20130717
  Receipt Date: 20131006
  Transmission Date: 20140711
  Serious: Yes (Hospitalization, Other)
  Sender: FDA-Public Use
  Company Number: PHHY2013BR075429

PATIENT
  Age: 67 Year
  Sex: Male

DRUGS (7)
  1. DIOVAN [Suspect]
     Indication: HYPERTENSION
     Dosage: 320 MG, DAILY
     Route: 048
     Dates: start: 201111
  2. DIOVAN [Suspect]
     Dosage: 160 MG, ONE TABLET, DAILY
     Route: 048
  3. PRESSAT [Concomitant]
     Dosage: 1 DF (10 MG), DAILY
     Route: 048
  4. SINVASTATINA [Concomitant]
     Dosage: 1 DF (40 MG), DAILY
     Route: 048
  5. OMEPRAZOLE [Concomitant]
     Indication: ABDOMINAL DISCOMFORT
     Dosage: 1 DF (20 MG), DAILY
     Route: 048
  6. ASS [Concomitant]
     Indication: ANTICOAGULANT THERAPY
     Dosage: 1 DF, DAILY
     Route: 048
  7. ORLISTAT [Concomitant]
     Dosage: 1 DF (120 MG), DAILY
     Route: 048

REACTIONS (12)
  - Haemorrhagic cerebral infarction [Recovered/Resolved with Sequelae]
  - Dyskinesia [Not Recovered/Not Resolved]
  - Dysstasia [Recovering/Resolving]
  - Speech disorder [Recovering/Resolving]
  - Hearing impaired [Not Recovered/Not Resolved]
  - Muscular weakness [Unknown]
  - Ischaemic stroke [Recovered/Resolved with Sequelae]
  - Aortic aneurysm [Not Recovered/Not Resolved]
  - Condition aggravated [Not Recovered/Not Resolved]
  - Stress [Recovered/Resolved]
  - Emotional disorder [Recovered/Resolved]
  - Blood pressure increased [Recovered/Resolved]
